FAERS Safety Report 4389242-1 (Version None)
Quarter: 2004Q2

REPORT INFORMATION
  Report Type: 
  Country: None (occurrence: None)
  Receive Date: 20040628
  Receipt Date: 20040614
  Transmission Date: 20050107
  Serious: Yes (Hospitalization)
  Sender: FDA-Public Use
  Company Number: 04P-008-0263775-00

PATIENT
  Age: 37 Year
  Sex: Male

DRUGS (2)
  1. WARFARIN SODIUM [Suspect]
     Indication: ANTICOAGULANT THERAPY
     Dosage: 120, PER ORAL;  5 MG, 1 IN 1 D, PER ORAL
  2. HEPARIN [Concomitant]

REACTIONS (4)
  - DYSARTHRIA [None]
  - INTENTIONAL OVERDOSE [None]
  - INTERNATIONAL NORMALISED RATIO DECREASED [None]
  - INTERNATIONAL NORMALISED RATIO INCREASED [None]
